FAERS Safety Report 6153610-8 (Version None)
Quarter: 2009Q2

REPORT INFORMATION
  Report Type: 
  Country: None (occurrence: None)
  Receive Date: 20090413
  Receipt Date: 20090330
  Transmission Date: 20091009
  Serious: Yes (Other)
  Sender: FDA-Public Use
  Company Number: US-PFIZER INC-2009190236

PATIENT
  Sex: Female
  Weight: 133.8 kg

DRUGS (7)
  1. LIPITOR [Suspect]
     Indication: BLOOD CHOLESTEROL INCREASED
     Dosage: UNK
  2. ATENOLOL [Concomitant]
     Dosage: UNK
  3. HYDROCHLOROTHIAZIDE [Concomitant]
     Dosage: UNK
  4. VYTORIN [Concomitant]
     Dosage: UNK
  5. COZAAR [Concomitant]
     Dosage: UNK
  6. RHINOCORT [Concomitant]
  7. IBUPROFEN [Concomitant]
     Dosage: UNK

REACTIONS (6)
  - BASEDOW'S DISEASE [None]
  - BLOOD GLUCOSE INCREASED [None]
  - DIABETES MELLITUS [None]
  - DRUG DOSE OMISSION [None]
  - HIP ARTHROPLASTY [None]
  - WEIGHT INCREASED [None]
